FAERS Safety Report 9164619 (Version 1)
Quarter: 2013Q1

REPORT INFORMATION
  Report Type: Spontaneous
  Country: US (occurrence: None)
  Receive Date: 20130301
  Receipt Date: 20130301
  Transmission Date: 20140127
  Serious: Yes (Other)
  Sender: FDA-Public Use
  Company Number: NSR_01048_2013

PATIENT
  Age: 1 Month
  Sex: Female

DRUGS (1)
  1. PROPRANOLOL [Suspect]
     Indication: HAEMANGIOMA
     Dosage: (2MG/MK [2 MG/KG/DAY IN THREE DIVIDED DOSES, GIVEN EVERY 8 HOURS])

REACTIONS (3)
  - Bradycardia [None]
  - Hypoglycaemia [None]
  - Hypoglycaemia [None]
